FAERS Safety Report 6340071-9 (Version None)
Quarter: 2009Q3

REPORT INFORMATION
  Report Type: 
  Country: None (occurrence: None)
  Receive Date: 20090902
  Receipt Date: 20090817
  Transmission Date: 20100115
  Serious: Yes (Death, Hospitalization)
  Sender: FDA-Public Use
  Company Number: 2009AL002546

PATIENT
  Age: 62 Year
  Sex: Male

DRUGS (23)
  1. DIGOXIN [Suspect]
     Dosage: 0.125MG, DAILY, PO
     Route: 048
  2. DIGOXIN [Suspect]
     Dosage: 0.125MG, M,W,F, PO
     Route: 048
  3. AMBIEN [Concomitant]
  4. ASPIRIN [Concomitant]
  5. GABAPENTIN [Concomitant]
  6. NITROQUIC [Concomitant]
  7. CLOTRIMAZOLE [Concomitant]
  8. LISINOPRIL [Concomitant]
  9. PREDNILSONE [Concomitant]
  10. NEXIUM [Concomitant]
  11. HYDROCHLOROQUINE [Concomitant]
  12. FUROSEMIDE [Concomitant]
  13. PROVENTIL-HFA [Concomitant]
  14. ALPRAZOLAM [Concomitant]
  15. BONIVA [Concomitant]
  16. FLUCONAZOLE [Concomitant]
  17. AMOXICILLIN [Concomitant]
  18. TEMAZEPAM [Concomitant]
  19. OMEPRAZOLE [Concomitant]
  20. ZOLPIDEM [Concomitant]
  21. HYOSCYAMINE [Concomitant]
  22. CARVEDILOL [Concomitant]
  23. COREG [Concomitant]

REACTIONS (24)
  - ABDOMINAL PAIN [None]
  - ANAEMIA [None]
  - BUNDLE BRANCH BLOCK [None]
  - CARDIAC FAILURE [None]
  - CARDIOMYOPATHY [None]
  - COLITIS [None]
  - COLONIC POLYP [None]
  - DIVERTICULUM [None]
  - DIZZINESS [None]
  - ECONOMIC PROBLEM [None]
  - FEBRILE NEUTROPENIA [None]
  - HAEMORRHOIDS [None]
  - HYPOTENSION [None]
  - ILL-DEFINED DISORDER [None]
  - INJURY [None]
  - MITRAL VALVE INCOMPETENCE [None]
  - MULTIPLE MYELOMA [None]
  - MUSCULOSKELETAL PAIN [None]
  - PROTEIN TOTAL INCREASED [None]
  - PYREXIA [None]
  - RECTAL HAEMORRHAGE [None]
  - SURGERY [None]
  - SYSTEMIC LUPUS ERYTHEMATOSUS [None]
  - TRICUSPID VALVE INCOMPETENCE [None]
